FAERS Safety Report 24027075 (Version 3)
Quarter: 2024Q3

REPORT INFORMATION
  Report Type: Report from Study
  Country: CO (occurrence: CO)
  Receive Date: 20240628
  Receipt Date: 20240710
  Transmission Date: 20241017
  Serious: No
  Sender: ROCHE
  Company Number: CO-ROCHE-3524265

PATIENT
  Age: 46 Year
  Sex: Female
  Weight: 75.0 kg

DRUGS (9)
  1. ALECTINIB [Suspect]
     Active Substance: ALECTINIB
     Indication: Non-small cell lung cancer metastatic
     Route: 048
     Dates: start: 20230309
  2. ALECTINIB [Suspect]
     Active Substance: ALECTINIB
     Indication: Hepatic cancer metastatic
     Route: 048
     Dates: start: 202106
  3. ACETAMINOPHEN [Concomitant]
     Active Substance: ACETAMINOPHEN
     Indication: Pain
     Route: 048
     Dates: start: 20230209
  4. TRAMADOL [Concomitant]
     Active Substance: TRAMADOL\TRAMADOL HYDROCHLORIDE
     Indication: Pain
     Dosage: 20 GTT
     Route: 048
     Dates: start: 20230209
  5. METHOCARBAMOL [Concomitant]
     Active Substance: METHOCARBAMOL
     Indication: Pain
     Route: 048
     Dates: start: 20230209
  6. LIDOCAINE [Concomitant]
     Active Substance: LIDOCAINE
     Indication: Pain
     Dosage: DRUG DOSE FIRST ADMINISTERED IS 1 OTHER ;ONGOING: YES
     Route: 062
     Dates: start: 20230209
  7. PREGABALIN [Concomitant]
     Active Substance: PREGABALIN
     Indication: Pain
     Route: 065
     Dates: start: 20230701
  8. TRAZODONE [Concomitant]
     Active Substance: TRAZODONE HYDROCHLORIDE
     Indication: Pain
     Route: 065
     Dates: start: 20230701
  9. OLANZAPINE [Concomitant]
     Active Substance: OLANZAPINE
     Indication: Pain
     Route: 048
     Dates: start: 20231116

REACTIONS (1)
  - Fatigue [Not Recovered/Not Resolved]

NARRATIVE: CASE EVENT DATE: 20230101
